FAERS Safety Report 4335123-9 (Version None)
Quarter: 2004Q2

REPORT INFORMATION
  Report Type: 
  Country: None (occurrence: None)
  Receive Date: 20040408
  Receipt Date: 20030522
  Transmission Date: 20050107
  Serious: Yes (Death)
  Sender: FDA-Public Use
  Company Number: PHHO2003CA06628

PATIENT
  Age: 35 Year
  Sex: Male
  Weight: 79 kg

DRUGS (4)
  1. DETROL [Suspect]
  2. CLOZARIL [Suspect]
     Indication: PSYCHOTIC DISORDER
     Dosage: 100 MG, TID
     Dates: start: 19960712
  3. CLOZARIL [Suspect]
     Dosage: 200 MG, QHS
     Dates: start: 19960612
  4. VALPROIC ACID [Concomitant]

REACTIONS (3)
  - COLONIC PSEUDO-OBSTRUCTION [None]
  - INFLUENZA LIKE ILLNESS [None]
  - SEPSIS [None]
